FAERS Safety Report 7572099 (Version 4)
Quarter: 2014Q2

REPORT INFORMATION
  Report Type: Spontaneous
  Country: US (occurrence: US)
  Receive Date: 20100903
  Receipt Date: 20140605
  Transmission Date: 20141212
  Serious: Yes (Hospitalization, Disabling)
  Sender: FDA-Public Use
  Company Number: US-BAYER-201032331NA

PATIENT
  Age: 16 Year
  Sex: Female

DRUGS (8)
  1. YAZ [Suspect]
     Dosage: UNK
     Route: 048
     Dates: start: 200702, end: 20080731
  2. YASMIN [Suspect]
     Dosage: UNK
     Dates: start: 200702, end: 20080731
  3. LEVOTHYROXINE [Concomitant]
     Route: 048
  4. METFORMIN [Concomitant]
     Route: 048
  5. ORAL CONTRACEPTIVE NOS [Concomitant]
     Route: 048
  6. METHYLPHENIDATE [Concomitant]
     Route: 048
  7. VICODIN [Concomitant]
     Route: 048
  8. PROVERA [Concomitant]

REACTIONS (7)
  - Cerebrovascular accident [Recovered/Resolved]
  - Hemiplegia [Recovered/Resolved]
  - Aphasia [Recovered/Resolved]
  - Abasia [Recovered/Resolved]
  - Thermoanaesthesia [Recovered/Resolved]
  - Impaired healing [None]
  - Anxiety [None]
